FAERS Safety Report 21949872 (Version 2)
Quarter: 2024Q3

REPORT INFORMATION
  Report Type: Spontaneous
  Country: BR (occurrence: BR)
  Receive Date: 20230203
  Receipt Date: 20240815
  Transmission Date: 20241016
  Serious: No
  Sender: CELLTRION
  Company Number: BR-CELLTRION INC.-2023BR002254

PATIENT

DRUGS (1)
  1. INFLIXIMAB [Suspect]
     Active Substance: INFLIXIMAB
     Indication: Product used for unknown indication
     Dosage: UNK
     Route: 042

REACTIONS (1)
  - Intentional dose omission [Unknown]
